FAERS Safety Report 5804929-9 (Version None)
Quarter: 2008Q3

REPORT INFORMATION
  Report Type: 
  Country: None (occurrence: None)
  Receive Date: 20080707
  Receipt Date: 20080623
  Transmission Date: 20090109
  Serious: Yes (Death)
  Sender: FDA-Public Use
  Company Number: 2008AL004900

PATIENT
  Age: 84 Year
  Sex: Male

DRUGS (1)
  1. DIGOXIN [Suspect]
     Dosage: .125MG DAILYX5DAY/WK, PO; .125MG BID,X2DAY/WK, PO
     Route: 048

REACTIONS (3)
  - DIZZINESS [None]
  - FALL [None]
  - HYPOTENSION [None]
